FAERS Safety Report 6723617-8 (Version None)
Quarter: 2010Q2

REPORT INFORMATION
  Report Type: 
  Country: None (occurrence: None)
  Receive Date: 20100513
  Receipt Date: 20100430
  Transmission Date: 20101027
  Serious: Yes (Other)
  Sender: FDA-Public Use
  Company Number: HK-WATSON-2010-06054

PATIENT
  Age: 16 Year
  Sex: Male

DRUGS (1)
  1. METHYLPHENIDATE HYDROCHLORIDE [Suspect]
     Indication: DRUG USE FOR UNKNOWN INDICATION
     Dosage: 100 MG, DAILY
     Route: 048

REACTIONS (3)
  - CARDIAC ENZYMES INCREASED [None]
  - CHEST PAIN [None]
  - MYOCARDIAL ISCHAEMIA [None]
